FAERS Safety Report 5130657-1 (Version None)
Quarter: 2006Q4

REPORT INFORMATION
  Report Type: 
  Country: None (occurrence: None)
  Receive Date: 20061019
  Receipt Date: 20061012
  Transmission Date: 20070319
  Serious: Yes (Hospitalization)
  Sender: FDA-Public Use
  Company Number: CG-MERCK-0610USA09948

PATIENT
  Age: 43 Year
  Sex: Female

DRUGS (1)
  1. STROMECTOL [Suspect]
     Route: 048
     Dates: start: 20060910, end: 20060910

REACTIONS (4)
  - ASTHENIA [None]
  - BACK PAIN [None]
  - HEADACHE [None]
  - LOSS OF CONTROL OF LEGS [None]
